FAERS Safety Report 7443248-4 (Version None)
Quarter: 2011Q2

REPORT INFORMATION
  Report Type: 
  Country: None (occurrence: None)
  Receive Date: 20110428
  Receipt Date: 20110422
  Transmission Date: 20111010
  Serious: Yes (Hospitalization, Disabling)
  Sender: FDA-Public Use
  Company Number: B0715290A

PATIENT
  Sex: Male
  Weight: 89 kg

DRUGS (16)
  1. ONON [Concomitant]
     Dosage: 500MG PER DAY
     Route: 048
     Dates: start: 20081003
  2. MUCOSOLVAN [Concomitant]
     Dosage: 45MG PER DAY
     Route: 048
     Dates: start: 20081003
  3. LOXONIN [Concomitant]
     Route: 048
     Dates: start: 20081010
  4. THEO-DUR [Concomitant]
     Dosage: 200MG PER DAY
     Route: 048
     Dates: start: 20080912
  5. NEUTROGIN [Suspect]
     Dates: start: 20081016, end: 20081024
  6. SALOBEL [Concomitant]
     Dosage: 200MG PER DAY
     Route: 048
     Dates: start: 20081003, end: 20081013
  7. CYMERIN [Suspect]
     Indication: STEM CELL TRANSPLANT
     Dosage: 500MG PER DAY
     Route: 042
     Dates: start: 20081007, end: 20081007
  8. BAKTAR [Suspect]
     Dosage: 2IUAX PER DAY
     Route: 048
     Dates: start: 20081015, end: 20081024
  9. GASTER [Concomitant]
     Dosage: 20MG PER DAY
     Route: 048
     Dates: start: 20080717
  10. LASTET [Suspect]
     Indication: STEM CELL TRANSPLANT
     Dosage: 300MG PER DAY
     Route: 042
     Dates: start: 20081008, end: 20081011
  11. CYLOCIDE [Suspect]
     Indication: STEM CELL TRANSPLANT
     Dosage: 640MG PER DAY
     Route: 042
     Dates: start: 20081008, end: 20081011
  12. BLOPRESS [Concomitant]
     Dosage: 8MG PER DAY
     Route: 048
     Dates: start: 20080301
  13. ALKERAN [Suspect]
     Indication: STEM CELL TRANSPLANT
     Dosage: 230MG PER DAY
     Route: 042
     Dates: start: 20081012, end: 20081012
  14. HOKUNALIN [Concomitant]
     Dosage: 2MG PER DAY
     Route: 061
     Dates: start: 20081004
  15. MYSLEE [Concomitant]
     Route: 048
     Dates: start: 20081010
  16. GRANISETRON HCL [Concomitant]
     Dosage: 6MG PER DAY
     Route: 042
     Dates: start: 20081007, end: 20081012

REACTIONS (4)
  - STOMATITIS [None]
  - BLOOD ALKALINE PHOSPHATASE INCREASED [None]
  - BLOOD UREA INCREASED [None]
  - FEBRILE NEUTROPENIA [None]
